FAERS Safety Report 4894133-3 (Version None)
Quarter: 2006Q1

REPORT INFORMATION
  Report Type: 
  Country: None (occurrence: None)
  Receive Date: 20060127
  Receipt Date: 20050816
  Transmission Date: 20060701
  Serious: No
  Sender: FDA-Public Use
  Company Number: US-GLAXOSMITHKLINE-A0570435A

PATIENT
  Age: 62 Year
  Sex: Female

DRUGS (3)
  1. WELLBUTRIN [Suspect]
     Indication: DEPRESSION
     Dosage: 75MG PER DAY
     Route: 048
     Dates: start: 20050814, end: 20050814
  2. REMERON [Concomitant]
  3. XANAX [Concomitant]

REACTIONS (2)
  - INSOMNIA [None]
  - TEARFULNESS [None]
